FAERS Safety Report 5401955-9 (Version None)
Quarter: 2007Q3

REPORT INFORMATION
  Report Type: 
  Country: None (occurrence: None)
  Receive Date: 20070731
  Receipt Date: 20070723
  Transmission Date: 20080115
  Serious: Yes (Life-Threatening)
  Sender: FDA-Public Use
  Company Number: JP-MERCK-0707USA04509

PATIENT

DRUGS (3)
  1. INDOMETHACIN [Suspect]
     Route: 054
  2. [THERAPY UNSPECIFIED] [Suspect]
     Route: 065
  3. [THERAPY UNSPECIFIED] [Concomitant]
     Route: 065

REACTIONS (1)
  - DRUG ERUPTION [None]
